FAERS Safety Report 8815254 (Version 1)
Quarter: 2012Q4

REPORT INFORMATION
  Report Type: 
  Country: DE (occurrence: DE)
  Receive Date: 20120928
  Receipt Date: 20120928
  Transmission Date: 20130627
  Serious: Yes (Hospitalization)
  Sender: FDA-Public Use
  Company Number: DE-JNJFOC-20120911859

PATIENT
  Age: 59 Year
  Sex: Male

DRUGS (4)
  1. PALEXIA [Suspect]
     Indication: SPINAL OSTEOARTHRITIS
     Route: 048
     Dates: start: 20110818, end: 20120903
  2. JURNISTA [Concomitant]
     Indication: PRODUCT USED FOR UNKNOWN INDICATION
     Route: 048
  3. ZOCOR [Concomitant]
     Indication: PRODUCT USED FOR UNKNOWN INDICATION
     Route: 048
  4. ASS [Concomitant]
     Indication: PRODUCT USED FOR UNKNOWN INDICATION
     Route: 065

REACTIONS (4)
  - Nystagmus [Recovered/Resolved]
  - Diplopia [Recovered/Resolved]
  - Cerebrovascular disorder [Recovered/Resolved]
  - Vertigo [Recovered/Resolved]
